FAERS Safety Report 25590316 (Version 1)
Quarter: 2025Q3

REPORT INFORMATION
  Report Type: Spontaneous
  Country: US (occurrence: None)
  Receive Date: 20250721
  Receipt Date: 20250721
  Transmission Date: 20251020
  Serious: Yes (Life-Threatening, Hospitalization)
  Sender: FDA-CTU
  Company Number: None

PATIENT
  Age: 34 Year
  Sex: Female
  Weight: 64.8 kg

DRUGS (6)
  1. YESINTEK [Suspect]
     Active Substance: USTEKINUMAB-KFCE
     Indication: Crohn^s disease
     Route: 058
     Dates: start: 20250718, end: 20250718
  2. BENTYL [Concomitant]
     Active Substance: DICYCLOMINE HYDROCHLORIDE
  3. ATIVAN [Concomitant]
     Active Substance: LORAZEPAM
  4. TRETINOIN [Concomitant]
     Active Substance: TRETINOIN
  5. LO LOESTRIN SE [Concomitant]
  6. ZOFRAN [Concomitant]
     Active Substance: ONDANSETRON HYDROCHLORIDE

REACTIONS (4)
  - Anaphylactic reaction [None]
  - Heart rate irregular [None]
  - Urticaria [None]
  - Contusion [None]

NARRATIVE: CASE EVENT DATE: 20250718
